FAERS Safety Report 4865846-4 (Version None)
Quarter: 2005Q4

REPORT INFORMATION
  Report Type: 
  Country: None (occurrence: None)
  Receive Date: 20051220
  Receipt Date: 20051207
  Transmission Date: 20060501
  Serious: Yes (Other)
  Sender: FDA-Public Use
  Company Number: 2005166565

PATIENT
  Age: 81 Year
  Sex: Female

DRUGS (3)
  1. MEDROXYPROGESTERONE ACETATE [Suspect]
     Indication: BREAST CANCER FEMALE
     Dosage: 600 MG (UNKNOWN), UNKNOWN
     Dates: start: 20050101
  2. MEDROXYPROGESTERONE ACETATE [Suspect]
     Indication: METASTASES TO BONE
     Dosage: 600 MG (UNKNOWN), UNKNOWN
     Dates: start: 20050101
  3. MEDROXYPROGESTERONE ACETATE [Suspect]
     Indication: METASTASES TO LIVER
     Dosage: 600 MG (UNKNOWN), UNKNOWN
     Dates: start: 20050101

REACTIONS (3)
  - HYPERGLYCAEMIA [None]
  - HYPERPHAGIA [None]
  - INCREASED APPETITE [None]
